FAERS Safety Report 12775385 (Version 1)
Quarter: 2016Q3

REPORT INFORMATION
  Report Type: Spontaneous
  Country: US (occurrence: US)
  Receive Date: 20160922
  Receipt Date: 20160922
  Transmission Date: 20161109
  Serious: Yes (Hospitalization, Other)
  Sender: FDA-Public Use
  Company Number: None

PATIENT
  Age: 69 Year
  Sex: Male
  Weight: 83.25 kg

DRUGS (7)
  1. OMEGA 3 [Concomitant]
     Active Substance: OMEGA-3 FATTY ACIDS
  2. LIPITOR [Suspect]
     Active Substance: ATORVASTATIN CALCIUM
     Indication: BLOOD CHOLESTEROL ABNORMAL
  3. VIT B COMPLEX [Concomitant]
  4. DIOVAN [Suspect]
     Active Substance: VALSARTAN
     Indication: BLOOD PRESSURE MEASUREMENT
  5. CIALIS [Suspect]
     Active Substance: TADALAFIL
     Indication: ERECTILE DYSFUNCTION
     Dosage: OTHER STRENGTH:;OTHER DOSE:;OTHER FREQUENCY:ONCE A YEAR, 2 YRS;OTHER ROUTE:
     Route: 048
  6. VISION HERBS [Concomitant]
  7. COQ10 [Concomitant]
     Active Substance: UBIDECARENONE

REACTIONS (1)
  - Syncope [None]

NARRATIVE: CASE EVENT DATE: 20160806
